FAERS Safety Report 6829569-4 (Version None)
Quarter: 2010Q3

REPORT INFORMATION
  Report Type: 
  Country: None (occurrence: None)
  Receive Date: 20100709
  Receipt Date: 20070330
  Transmission Date: 20110219
  Serious: Yes (Disabling, Other)
  Sender: FDA-Public Use
  Company Number: US-PFIZER INC-2007008190

PATIENT
  Sex: Male
  Weight: 130.6 kg

DRUGS (2)
  1. CHANTIX [Suspect]
     Indication: TOBACCO ABUSE
     Dates: start: 20060928
  2. ATIVAN [Concomitant]

REACTIONS (2)
  - AGITATION [None]
  - ANXIETY [None]
